FAERS Safety Report 6100701-3 (Version None)
Quarter: 2009Q1

REPORT INFORMATION
  Report Type: 
  Country: None (occurrence: None)
  Receive Date: 20090303
  Receipt Date: 20090216
  Transmission Date: 20090719
  Serious: Yes (Hospitalization)
  Sender: FDA-Public Use
  Company Number: PHHY2009SK07424

PATIENT
  Sex: Female

DRUGS (4)
  1. VOLTAREN [Suspect]
     Dosage: 2X50 MG FOR 5 DAYS
     Dates: start: 20090111, end: 20090115
  2. MODURETIC 5-50 [Concomitant]
  3. EUTHYROX [Concomitant]
     Dosage: 75 MG/DAY
  4. GLYVENOL [Concomitant]
     Dosage: 400 MG/DAY

REACTIONS (3)
  - ABDOMINAL PAIN [None]
  - METABOLIC DISORDER [None]
  - VOMITING [None]
